FAERS Safety Report 15365193 (Version 2)
Quarter: 2018Q4

REPORT INFORMATION
  Report Type: Spontaneous
  Country: PT (occurrence: PT)
  Receive Date: 20180910
  Receipt Date: 20181003
  Transmission Date: 20190204
  Serious: Yes (Other)
  Sender: FDA-Public Use
  Company Number: PT-BRISTOL-MYERS SQUIBB COMPANY-BMS-2018-079950

PATIENT
  Age: 32 Year
  Sex: Female

DRUGS (6)
  1. METYRAPONE [Suspect]
     Active Substance: METYRAPONE
     Indication: PITUITARY TUMOUR BENIGN
     Route: 065
  2. METYRAPONE [Suspect]
     Active Substance: METYRAPONE
     Indication: CORTISOL INCREASED
     Route: 065
  3. METFORMIN HYDROCHLORIDE. [Suspect]
     Active Substance: METFORMIN HYDROCHLORIDE
     Indication: GESTATIONAL DIABETES
     Dosage: UNK
     Route: 065
  4. INSULIN [Suspect]
     Active Substance: INSULIN NOS
     Indication: GESTATIONAL DIABETES
     Dosage: UNK
     Route: 065
  5. METYRAPONE [Suspect]
     Active Substance: METYRAPONE
     Indication: PITUITARY-DEPENDENT CUSHING^S SYNDROME
     Dosage: UNK
     Route: 065
  6. KETOCONAZOLE. [Suspect]
     Active Substance: KETOCONAZOLE
     Indication: PITUITARY TUMOUR BENIGN
     Dosage: 200 MG, QD
     Route: 065

REACTIONS (6)
  - Premature delivery [Unknown]
  - Product use in unapproved indication [Unknown]
  - Premature rupture of membranes [Recovered/Resolved]
  - Maternal exposure during pregnancy [Recovered/Resolved]
  - Cortisol increased [Recovering/Resolving]
  - Cellulitis [Unknown]
